FAERS Safety Report 8770172 (Version 1)
Quarter: 2012Q4

REPORT INFORMATION
  Report Type: 
  Country: TR (occurrence: TR)
  Receive Date: 20120905
  Receipt Date: 20120905
  Transmission Date: 20130627
  Serious: Yes (Hospitalization, Other)
  Sender: FDA-Public Use
  Company Number: TR-PAR PHARMACEUTICAL, INC-2012SCPR004600

PATIENT

DRUGS (7)
  1. OLANZAPINE [Suspect]
     Indication: DEPRESSION
     Dosage: 5 mg, qd
     Route: 065
  2. VENLAFAXINE HYDROCHLORIDE [Suspect]
     Indication: MAJOR DEPRESSION
     Dosage: 150 mg, qd
     Route: 065
  3. MIRTAZAPINE [Suspect]
     Indication: DEPRESSION
     Dosage: 30 mg, qd
     Route: 065
  4. SERTRALIN /01011402/ [Suspect]
     Indication: DEPRESSION
     Dosage: 50 mg, qd
     Route: 065
  5. CANNABIS [Suspect]
     Indication: PRODUCT USED FOR UNKNOWN INDICATION
     Dosage: different doses, 1-2 times Weekly
     Route: 065
  6. METHYLENEDIOXYMETHAMPHETAMINE [Suspect]
     Indication: PRODUCT USED FOR UNKNOWN INDICATION
     Dosage: upto 7-8 tablets weekly
     Route: 065
  7. ALCOHOL [Suspect]
     Indication: PRODUCT USED FOR UNKNOWN INDICATION
     Dosage: UNK, Unknown
     Route: 065

REACTIONS (2)
  - Sinus arrhythmia [Not Recovered/Not Resolved]
  - Drug abuse [Unknown]
